FAERS Safety Report 13681457 (Version 1)
Quarter: 2017Q2

REPORT INFORMATION
  Report Type: Spontaneous
  Country: US (occurrence: US)
  Receive Date: 20170622
  Receipt Date: 20170622
  Transmission Date: 20170830
  Serious: Yes (Disabling)
  Sender: FDA-Public Use
  Company Number: None

PATIENT
  Age: 24 Year
  Sex: Female
  Weight: 52.65 kg

DRUGS (1)
  1. CIPROFLOXACIN HCL 500 MG [Suspect]
     Active Substance: CIPROFLOXACIN HYDROCHLORIDE
     Indication: SEPSIS
     Dosage: ?          QUANTITY:14 TABLET(S);?
     Route: 048
     Dates: start: 20170618, end: 20170620

REACTIONS (6)
  - Hallucination, visual [None]
  - Hypoaesthesia [None]
  - Confusional state [None]
  - Quality of life decreased [None]
  - Depressed level of consciousness [None]
  - Anger [None]

NARRATIVE: CASE EVENT DATE: 20170618
